FAERS Safety Report 11587662 (Version 1)
Quarter: 2015Q4

REPORT INFORMATION
  Report Type: Report from Study
  Country: ES (occurrence: ES)
  Receive Date: 20151001
  Receipt Date: 20151001
  Transmission Date: 20160304
  Serious: Yes (Other)
  Sender: FDA-Public Use
  Company Number: ES-ABBVIE-15P-144-1471017-00

PATIENT
  Age: 74 Year
  Sex: Female

DRUGS (1)
  1. LEVODOPA/CARBIDOPA [Suspect]
     Active Substance: CARBIDOPA\LEVODOPA
     Indication: PARKINSON^S DISEASE
     Route: 050
     Dates: start: 201310

REACTIONS (4)
  - Abnormal behaviour [Unknown]
  - Cerebral infarction [Unknown]
  - Disorientation [Unknown]
  - Drooling [Unknown]

NARRATIVE: CASE EVENT DATE: 201508
